FAERS Safety Report 9372210 (Version 2)
Quarter: 2013Q3

REPORT INFORMATION
  Report Type: Spontaneous
  Country: US (occurrence: US)
  Receive Date: 20130627
  Receipt Date: 20130719
  Transmission Date: 20140515
  Serious: Yes (Life-Threatening, Other)
  Sender: FDA-Public Use
  Company Number: US-ASTRAZENECA-2013SE47467

PATIENT
  Age: 11873 Day
  Sex: Male
  Weight: 83.9 kg

DRUGS (4)
  1. SYMBICORT [Suspect]
     Dosage: 160/4.5, 2 PUFFS, BID
     Route: 055
  2. ZYRTEC [Concomitant]
     Route: 048
  3. XOPENEX [Concomitant]
     Dosage: 0.63 MG, 1 AMP Q 4-6 HRS
     Route: 048
  4. SPIRIVA [Concomitant]
     Dosage: 18 MCG, I INHALATION QD
     Route: 055

REACTIONS (1)
  - Pulmonary embolism [Recovering/Resolving]
